FAERS Safety Report 8619672-0 (Version None)
Quarter: 2012Q3

REPORT INFORMATION
  Report Type: 
  Country: None (occurrence: None)
  Receive Date: 20120824
  Receipt Date: 20120822
  Transmission Date: 20120928
  Serious: Yes (Hospitalization, Other)
  Sender: FDA-Public Use
  Company Number: US-PFIZER INC-2012180397

PATIENT
  Age: 70 Year
  Sex: Female
  Weight: 58 kg

DRUGS (5)
  1. CHANTIX [Suspect]
     Dosage: UNK
  2. CELEXA [Concomitant]
     Dosage: UNK
  3. CHANTIX [Suspect]
     Indication: SMOKING CESSATION THERAPY
     Dosage: 1 MG, 2X/DAY
     Route: 048
     Dates: start: 20120101, end: 20120101
  4. LASIX [Concomitant]
     Indication: HYPERTENSION
     Dosage: UNK
  5. CHANTIX [Suspect]
     Dosage: UNK

REACTIONS (6)
  - FALL [None]
  - MALAISE [None]
  - CYSTITIS [None]
  - LOSS OF CONSCIOUSNESS [None]
  - HALLUCINATION [None]
  - ABNORMAL DREAMS [None]
